FAERS Safety Report 24670196 (Version 1)
Quarter: 2024Q4

REPORT INFORMATION
  Report Type: Spontaneous
  Country: US (occurrence: None)
  Receive Date: 20241126
  Receipt Date: 20241126
  Transmission Date: 20250114
  Serious: No
  Sender: Public
  Company Number: None

PATIENT
  Age: 40 Year
  Sex: Female
  Weight: 57.15 kg

DRUGS (2)
  1. METRONIDAZOLE [Suspect]
     Active Substance: METRONIDAZOLE
  2. IRON [Suspect]
     Active Substance: IRON

REACTIONS (9)
  - Product prescribing issue [None]
  - Dry eye [None]
  - Dry mouth [None]
  - Dry skin [None]
  - Mucosal dryness [None]
  - Anhidrosis [None]
  - Collagen disorder [None]
  - Dyskinesia [None]
  - Arthralgia [None]
